FAERS Safety Report 9723983 (Version 1)
Quarter: 2013Q4

REPORT INFORMATION
  Report Type: Spontaneous
  Country: US (occurrence: US)
  Receive Date: 20131202
  Receipt Date: 20131202
  Transmission Date: 20140711
  Serious: No
  Sender: FDA-Public Use
  Company Number: US-AMGEN-USASP2013078434

PATIENT
  Age: 55 Year
  Sex: Female

DRUGS (3)
  1. ENBREL [Suspect]
     Indication: RHEUMATOID ARTHRITIS
     Dosage: 50 MG, QWK
     Route: 065
     Dates: start: 2011
  2. CIMZIA [Concomitant]
     Dosage: UNK
  3. HUMIRA [Concomitant]
     Dosage: UNK

REACTIONS (3)
  - Tendon rupture [Not Recovered/Not Resolved]
  - Finger deformity [Not Recovered/Not Resolved]
  - Nodule [Not Recovered/Not Resolved]
